FAERS Safety Report 19133191 (Version 1)
Quarter: 2021Q2

REPORT INFORMATION
  Report Type: Other
  Country: US (occurrence: US)
  Receive Date: 20210413
  Receipt Date: 20210413
  Transmission Date: 20210717
  Serious: Yes (Death)
  Sender: FDA-Public Use
  Company Number: US-B.BRAUN MEDICAL INC.-2109295

PATIENT
  Age: 63 Year
  Sex: Male

DRUGS (2)
  1. LACTATED RINGERS SOLUTION [Suspect]
     Active Substance: CALCIUM CHLORIDE\POTASSIUM CHLORIDE\SODIUM CHLORIDE\SODIUM LACTATE
     Indication: SHOCK
     Route: 042
  2. EPINEPHRINE. [Concomitant]
     Active Substance: EPINEPHRINE
     Route: 042

REACTIONS (1)
  - Drug ineffective [Fatal]
